FAERS Safety Report 11988110 (Version 3)
Quarter: 2016Q4

REPORT INFORMATION
  Report Type: Spontaneous
  Country: JP (occurrence: JP)
  Receive Date: 20160202
  Receipt Date: 20161221
  Transmission Date: 20170206
  Serious: Yes (Death, Hospitalization)
  Sender: FDA-Public Use
  Company Number: JP-ACTELION-A-CH2016-130552

PATIENT
  Age: 57 Year
  Sex: Female

DRUGS (2)
  1. OPSUMIT [Suspect]
     Active Substance: MACITENTAN
     Dosage: 10 MG, QD
     Route: 048
     Dates: start: 20160129
  2. OPSUMIT [Suspect]
     Active Substance: MACITENTAN
     Indication: PULMONARY ARTERIAL HYPERTENSION
     Dosage: 2.5 MG, BID
     Route: 048
     Dates: start: 20160111, end: 20160128

REACTIONS (5)
  - Hyperammonaemia [Recovered/Resolved]
  - Cerebral haemorrhage [Unknown]
  - Hepatic encephalopathy [Recovered/Resolved]
  - Altered state of consciousness [Recovered/Resolved]
  - Oesophageal varices haemorrhage [Fatal]

NARRATIVE: CASE EVENT DATE: 20160112
